FAERS Safety Report 24453622 (Version 2)
Quarter: 2024Q4

REPORT INFORMATION
  Report Type: Report from Study
  Country: US (occurrence: US)
  Receive Date: 20241017
  Receipt Date: 20241018
  Transmission Date: 20250114
  Serious: No
  Sender: ROCHE
  Company Number: US-ROCHE-3374683

PATIENT
  Age: 65 Year
  Sex: Female

DRUGS (2)
  1. RITUXAN [Suspect]
     Active Substance: RITUXIMAB
     Indication: Chronic inflammatory demyelinating polyradiculoneuropathy
     Dosage: INFUSE 500MG INTRAVENOUSLY ON DAY(S) 1 AND DAY(S) 15 THEN 500MG EVERY 24 WEEK(S), EVERY 4 MONTHS
     Route: 041
     Dates: start: 202309
  2. RITUXAN [Suspect]
     Active Substance: RITUXIMAB
     Indication: Polyneuropathy

REACTIONS (2)
  - Off label use [Unknown]
  - Malaise [Unknown]
